FAERS Safety Report 8782290 (Version 1)
Quarter: 2012Q4

REPORT INFORMATION
  Report Type: Report from Study
  Country: US (occurrence: US)
  Receive Date: 20120913
  Receipt Date: 20120913
  Transmission Date: 20130627
  Serious: No
  Sender: FDA-Public Use
  Company Number: US-VERTEX PHARMACEUTICAL INC.-2012-019983

PATIENT
  Sex: Male
  Weight: 95.24 kg

DRUGS (7)
  1. VX-950 [Suspect]
     Indication: HEPATITIS C
     Dosage: 750 mg, tid
     Route: 048
  2. PEGASYS [Concomitant]
  3. RIBAPAK [Concomitant]
     Dosage: 1200 UNK, qd
  4. PANTOPRAZOLE [Concomitant]
     Dosage: 40 mg, UNK
  5. LANTUS [Concomitant]
     Dosage: 100 UNK, UNK
  6. NADOLOL [Concomitant]
     Dosage: 200 mg, UNK
  7. NOVOLIN R [Concomitant]
     Dosage: UNK

REACTIONS (5)
  - Influenza like illness [Unknown]
  - Decreased appetite [Unknown]
  - Fatigue [Unknown]
  - Nausea [Recovered/Resolved]
  - Dysgeusia [Unknown]
